FAERS Safety Report 8051290-8 (Version None)
Quarter: 2012Q1

REPORT INFORMATION
  Report Type: 
  Country: None (occurrence: None)
  Receive Date: 20120117
  Receipt Date: 20120104
  Transmission Date: 20120608
  Serious: Yes (Hospitalization)
  Sender: FDA-Public Use
  Company Number: IE-MEDIMMUNE-MEDI-0014441

PATIENT
  Sex: Male
  Weight: 3 kg

DRUGS (3)
  1. FERROUS SULFATE TAB [Concomitant]
  2. SYNAGIS [Suspect]
     Route: 030
     Dates: start: 20111207, end: 20111207
  3. ERGOCALCIFEROL [Concomitant]

REACTIONS (2)
  - HERNIA [None]
  - TESTICULAR DISORDER [None]
